FAERS Safety Report 7027404-5 (Version None)
Quarter: 2010Q4

REPORT INFORMATION
  Report Type: 
  Country: None (occurrence: None)
  Receive Date: 20101004
  Receipt Date: 20100930
  Transmission Date: 20110411
  Serious: Yes (Other)
  Sender: FDA-Public Use
  Company Number: US-JNJFOC-20100805495

PATIENT
  Age: 16 Month
  Sex: Female

DRUGS (2)
  1. CONCENTRATED TYLENOL INFANT DROPS [Suspect]
  2. CONCENTRATED TYLENOL INFANT DROPS [Suspect]
     Indication: PYREXIA
     Dosage: DOSE REPORED AS ^MEASURED DOSING^

REACTIONS (3)
  - DRUG INEFFECTIVE [None]
  - FEBRILE CONVULSION [None]
  - PRODUCT QUALITY ISSUE [None]
